FAERS Safety Report 8121131-9 (Version None)
Quarter: 2012Q1

REPORT INFORMATION
  Report Type: 
  Country: None (occurrence: None)
  Receive Date: 20120208
  Receipt Date: 20120201
  Transmission Date: 20120608
  Serious: Yes (Other)
  Sender: FDA-Public Use
  Company Number: US-BRISTOL-MYERS SQUIBB COMPANY-16378184

PATIENT

DRUGS (1)
  1. ONGLYZA [Suspect]

REACTIONS (2)
  - CHEST PAIN [None]
  - ARTHRALGIA [None]
